FAERS Safety Report 7361303-4 (Version None)
Quarter: 2011Q1

REPORT INFORMATION
  Report Type: 
  Country: None (occurrence: None)
  Receive Date: 20110318
  Receipt Date: 20110311
  Transmission Date: 20110831
  Serious: Yes (Death)
  Sender: FDA-Public Use
  Company Number: A0915961A

PATIENT
  Sex: Female

DRUGS (1)
  1. TYKERB [Suspect]
     Dates: start: 20101116, end: 20110201

REACTIONS (1)
  - DEATH [None]
